FAERS Safety Report 12322016 (Version 1)
Quarter: 2016Q2

REPORT INFORMATION
  Report Type: Spontaneous
  Country: RU (occurrence: RU)
  Receive Date: 20160502
  Receipt Date: 20160502
  Transmission Date: 20160815
  Serious: Yes (Hospitalization, Disabling, Other)
  Sender: FDA-Public Use
  Company Number: RU-GLAXOSMITHKLINE-RU2016GSK058609

PATIENT
  Age: 73 Year
  Sex: Male

DRUGS (2)
  1. DIABETON [Concomitant]
     Indication: PRODUCT USED FOR UNKNOWN INDICATION
     Dosage: UNK
  2. VALTREX [Suspect]
     Active Substance: VALACYCLOVIR HYDROCHLORIDE
     Indication: HERPES ZOSTER
     Dosage: 1 G, TID
     Dates: start: 20160415, end: 20160419

REACTIONS (2)
  - Acute kidney injury [Recovering/Resolving]
  - Anuria [Unknown]

NARRATIVE: CASE EVENT DATE: 20160419
